FAERS Safety Report 20405268 (Version 12)
Quarter: 2024Q4

REPORT INFORMATION
  Report Type: Spontaneous
  Country: US (occurrence: US)
  Receive Date: 20220131
  Receipt Date: 20241218
  Transmission Date: 20250114
  Serious: Yes (Other)
  Sender: PFIZER
  Company Number: US-PFIZER INC-202200132670

PATIENT
  Age: 56 Year
  Sex: Male
  Weight: 94.3 kg

DRUGS (5)
  1. INLYTA [Suspect]
     Active Substance: AXITINIB
     Indication: Renal cancer
     Dosage: 5 MG
     Dates: start: 20211207
  2. INLYTA [Suspect]
     Active Substance: AXITINIB
     Indication: Pharyngeal cancer
     Dosage: UNK
     Dates: start: 20220117
  3. INLYTA [Suspect]
     Active Substance: AXITINIB
     Indication: Renal cell carcinoma
     Dosage: 5 MG
     Dates: start: 20220224
  4. INLYTA [Suspect]
     Active Substance: AXITINIB
     Dosage: EVERY 12 (TWELVE) HOURS) (5 MG P.O. TWICE DAILY)/1 TABLET BY MOUTH EVERY 12 (TWELVE) HOURS
     Route: 048
     Dates: start: 20221129
  5. KEYTRUDA [Suspect]
     Active Substance: PEMBROLIZUMAB
     Dosage: UNK (200 MG IV EVERY 3 WEEKS)
     Route: 042

REACTIONS (9)
  - Hypertension [Recovered/Resolved]
  - Head discomfort [Unknown]
  - Diarrhoea [Unknown]
  - Fatigue [Unknown]
  - Neoplasm progression [Unknown]
  - Blood creatinine increased [Unknown]
  - Pruritus [Unknown]
  - Creatinine renal clearance decreased [Unknown]
  - Product dose omission issue [Unknown]

NARRATIVE: CASE EVENT DATE: 20220101
